FAERS Safety Report 8211501-2 (Version None)
Quarter: 2012Q1

REPORT INFORMATION
  Report Type: 
  Country: None (occurrence: None)
  Receive Date: 20120315
  Receipt Date: 20120312
  Transmission Date: 20120608
  Serious: Yes (Other)
  Sender: FDA-Public Use
  Company Number: US-PFIZER INC-2012044880

PATIENT
  Sex: Female

DRUGS (2)
  1. CHANTIX [Interacting]
     Dosage: UNK
  2. CHANTIX [Suspect]
     Indication: SMOKING CESSATION THERAPY
     Dosage: 0.5 MG, 1X/DAY

REACTIONS (3)
  - DEPRESSION [None]
  - COUGH [None]
  - DRUG INTERACTION [None]
